FAERS Safety Report 8121972-8 (Version None)
Quarter: 2012Q1

REPORT INFORMATION
  Report Type: 
  Country: None (occurrence: None)
  Receive Date: 20120208
  Receipt Date: 20120131
  Transmission Date: 20120608
  Serious: Yes (Hospitalization)
  Sender: FDA-Public Use
  Company Number: US-BAYER-2011-102858

PATIENT
  Age: 43 Year
  Sex: Female
  Weight: 81.9 kg

DRUGS (3)
  1. YASMIN [Suspect]
     Dosage: UNK
     Dates: start: 20050101, end: 20090901
  2. SYNTHROID [Concomitant]
     Dosage: 100 ?G, QD
     Route: 048
  3. FLUOXETINE [Concomitant]
     Dosage: 20 MG, QD
     Route: 048

REACTIONS (6)
  - DEEP VEIN THROMBOSIS [None]
  - EMOTIONAL DISTRESS [None]
  - PAIN IN EXTREMITY [None]
  - OEDEMA PERIPHERAL [None]
  - INJURY [None]
  - PAIN [None]
